FAERS Safety Report 6153286-X (Version None)
Quarter: 2009Q2

REPORT INFORMATION
  Report Type: 
  Country: None (occurrence: None)
  Receive Date: 20090413
  Receipt Date: 20090403
  Transmission Date: 20091009
  Serious: Yes (Hospitalization, Other)
  Sender: FDA-Public Use
  Company Number: PHEH2009US03369

PATIENT
  Sex: Male

DRUGS (10)
  1. CLOZARIL [Suspect]
     Indication: SCHIZOAFFECTIVE DISORDER
     Dosage: 600 MG, QD
     Route: 048
     Dates: start: 20010101
  2. CLOZARIL [Suspect]
     Dosage: 450 MG, UNK
     Route: 048
  3. CLOZARIL [Suspect]
     Dosage: 600 MG, UNK
     Route: 048
  4. DEPAKOTE [Suspect]
  5. FAZACLO ODT [Suspect]
  6. ABILIFY [Concomitant]
  7. ZYPREXA [Concomitant]
     Dosage: 15 MG, UNK
  8. CHEMOTHERAPEUTICS NOS [Concomitant]
     Dosage: UNK
     Dates: start: 20030101
  9. PROLIXIN [Concomitant]
  10. RESPITOL [Concomitant]

REACTIONS (8)
  - DELUSIONAL DISORDER, UNSPECIFIED TYPE [None]
  - LYMPHOMA [None]
  - MOVEMENT DISORDER [None]
  - PSYCHOTIC DISORDER [None]
  - SPEECH DISORDER [None]
  - TESTICULAR OPERATION [None]
  - TESTIS CANCER [None]
  - WEIGHT INCREASED [None]
